FAERS Safety Report 5386942-1 (Version None)
Quarter: 2007Q3

REPORT INFORMATION
  Report Type: 
  Country: None (occurrence: None)
  Receive Date: 20070713
  Receipt Date: 20070703
  Transmission Date: 20080115
  Serious: Yes (Hospitalization)
  Sender: FDA-Public Use
  Company Number: FR-PFIZER INC-2007054805

PATIENT
  Sex: Female

DRUGS (7)
  1. DALACINE IV [Suspect]
     Route: 042
  2. PROFENID [Suspect]
     Route: 042
  3. HYPNOVEL [Suspect]
     Route: 042
  4. DIPRIVAN [Suspect]
     Route: 042
  5. LEVOTHYROXINE SODIUM [Concomitant]
  6. SUFENTANIL CITRATE [Concomitant]
  7. SEVOFLURANE [Concomitant]

REACTIONS (3)
  - NEUTROPHILIA [None]
  - RASH [None]
  - RASH PUSTULAR [None]
